FAERS Safety Report 7166759-8 (Version None)
Quarter: 2010Q4

REPORT INFORMATION
  Report Type: 
  Country: None (occurrence: None)
  Receive Date: 20101216
  Receipt Date: 20101213
  Transmission Date: 20110411
  Serious: Yes (Other)
  Sender: FDA-Public Use
  Company Number: GB-ROCHE-746965

PATIENT
  Sex: Female

DRUGS (2)
  1. AVASTIN [Suspect]
     Route: 042
  2. AVASTIN [Suspect]
     Dosage: EVERY 21 DAYS
     Route: 042
     Dates: start: 20100423, end: 20101104

REACTIONS (1)
  - ANKLE FRACTURE [None]
